FAERS Safety Report 19207054 (Version 2)
Quarter: 2021Q4

REPORT INFORMATION
  Report Type: Spontaneous
  Country: US (occurrence: US)
  Receive Date: 20210503
  Receipt Date: 20211013
  Transmission Date: 20220303
  Serious: Yes (Death, Life-Threatening, Hospitalization)
  Sender: FDA-Public Use
  Company Number: US-MYLANLABS-2021M1025279

PATIENT
  Age: 32 Year
  Sex: Male

DRUGS (2)
  1. COLCHICINE [Suspect]
     Active Substance: COLCHICINE
     Indication: Myocarditis
     Dosage: 32.4MG (0.39 MG/KG) AND 54MG (0.65 MG/KG)
     Route: 048
  2. COLCHICINE [Suspect]
     Active Substance: COLCHICINE
     Indication: Pericarditis
     Dosage: 0.39 MG/KG TO 0.65 MG/KG; FORMULATION: PILLS
     Route: 048

REACTIONS (34)
  - Multiple organ dysfunction syndrome [Fatal]
  - Acute kidney injury [Fatal]
  - Disseminated intravascular coagulation [Unknown]
  - Acute hepatic failure [Recovered/Resolved]
  - Acute kidney injury [Not Recovered/Not Resolved]
  - Rhabdomyolysis [Unknown]
  - Cardiac failure [Unknown]
  - Metabolic acidosis [Unknown]
  - Haemolysis [Unknown]
  - Candida infection [Not Recovered/Not Resolved]
  - Respiratory distress [Unknown]
  - Myelosuppression [Unknown]
  - Shock [Unknown]
  - Tachycardia [Unknown]
  - Tachypnoea [Unknown]
  - Toxicity to various agents [Unknown]
  - Intentional overdose [Unknown]
  - Neutropenia [Unknown]
  - Pancytopenia [Unknown]
  - Cardiovascular disorder [Unknown]
  - Troponin increased [Unknown]
  - Mouth haemorrhage [Unknown]
  - Catheter site haemorrhage [Unknown]
  - Arterial haemorrhage [Unknown]
  - Lactic acidosis [Not Recovered/Not Resolved]
  - Hyperkalaemia [Not Recovered/Not Resolved]
  - Hyperphosphataemia [Not Recovered/Not Resolved]
  - Hypocalcaemia [Not Recovered/Not Resolved]
  - Hypomagnesaemia [Not Recovered/Not Resolved]
  - Hypoglycaemia [Unknown]
  - Abdominal pain [Unknown]
  - Nausea [Unknown]
  - Vomiting [Unknown]
  - Diarrhoea [Unknown]
